FAERS Safety Report 9527990 (Version 1)
Quarter: 2013Q1

REPORT INFORMATION
  Report Type: Spontaneous
  Country: US (occurrence: None)
  Receive Date: 20130314
  Receipt Date: 20130314
  Transmission Date: 20140127
  Serious: Yes (Other)
  Sender: FDA-Public Use
  Company Number: 1212USA000799

PATIENT
  Age: 60 Year
  Sex: Female

DRUGS (6)
  1. VICTRELIS (BOCEPREVIR) CAPSULE, 200MG [Suspect]
     Indication: HEPATITIS C
     Route: 048
     Dates: start: 20121115
  2. PEGASYS (PEGINTERFERON ALFA-2A) [Suspect]
  3. RIBASPHERE (RIBAVIRIN) [Suspect]
  4. ATENOLOL (ATENOLOL) [Concomitant]
  5. LISINOPRIL (LISINOPRIL) [Concomitant]
  6. HYDROCODONE (HYDROCODONE) [Concomitant]

REACTIONS (3)
  - Dyspnoea [None]
  - Nausea [None]
  - Fatigue [None]
